FAERS Safety Report 6044329-2 (Version None)
Quarter: 2009Q1

REPORT INFORMATION
  Report Type: 
  Country: None (occurrence: None)
  Receive Date: 20090120
  Receipt Date: 20081009
  Transmission Date: 20090719
  Serious: No
  Sender: FDA-Public Use
  Company Number: US-BAYER-200814037BCC

PATIENT
  Age: 27 Year
  Sex: Female
  Weight: 59 kg

DRUGS (1)
  1. MIDOL [Suspect]
     Indication: MENSTRUAL DISORDER
     Route: 048
     Dates: start: 20060101

REACTIONS (1)
  - SOMNOLENCE [None]
